FAERS Safety Report 17722684 (Version 2)
Quarter: 2020Q2

REPORT INFORMATION
  Report Type: Spontaneous
  Country: FR (occurrence: FR)
  Receive Date: 20200429
  Receipt Date: 20200506
  Transmission Date: 20200714
  Serious: Yes (Death, Other)
  Sender: FDA-Public Use
  Company Number: FR-PFIZER INC-2020171531

PATIENT
  Age: 47 Year
  Sex: Male

DRUGS (3)
  1. KETOCONAZOLE. [Suspect]
     Active Substance: KETOCONAZOLE
     Indication: SCEDOSPORIUM INFECTION
     Dosage: UNK
  2. MICONAZOLE. [Suspect]
     Active Substance: MICONAZOLE
     Indication: SCEDOSPORIUM INFECTION
     Dosage: UNK
  3. FLUCONAZOLE. [Suspect]
     Active Substance: FLUCONAZOLE
     Indication: SCEDOSPORIUM INFECTION
     Dosage: UNK

REACTIONS (1)
  - Death [Fatal]
